FAERS Safety Report 17175667 (Version 2)
Quarter: 2020Q1

REPORT INFORMATION
  Report Type: Report from Study
  Country: US (occurrence: US)
  Receive Date: 20191219
  Receipt Date: 20200305
  Transmission Date: 20200409
  Serious: No
  Sender: FDA-Public Use
  Company Number: NVSC2019US073369

PATIENT
  Sex: Female
  Weight: 63.5 kg

DRUGS (1)
  1. ILARIS [Suspect]
     Active Substance: CANAKINUMAB
     Indication: AUTOIMMUNE DISORDER
     Dosage: 150 MG, Q4W
     Route: 058

REACTIONS (1)
  - Symptom recurrence [Unknown]
